FAERS Safety Report 6578283-1 (Version None)
Quarter: 2010Q1

REPORT INFORMATION
  Report Type: 
  Country: None (occurrence: None)
  Receive Date: 20100211
  Receipt Date: 20100204
  Transmission Date: 20100710
  Serious: Yes (Other)
  Sender: FDA-Public Use
  Company Number: B0631218A

PATIENT
  Sex: Male

DRUGS (7)
  1. SERETIDE [Suspect]
     Dosage: 500MCG TWICE PER DAY
     Route: 055
     Dates: start: 20091111, end: 20091230
  2. NORVIR [Suspect]
     Dosage: 100MG TWICE PER DAY
     Route: 048
  3. KIVEXA [Concomitant]
     Route: 048
  4. PREZISTA [Concomitant]
     Route: 065
  5. SPIRIVA [Concomitant]
     Route: 065
     Dates: start: 20091101
  6. ATENOLOL [Concomitant]
     Indication: HYPERTENSION
     Route: 065
  7. KARDEGIC [Concomitant]
     Indication: HYPERTENSION
     Route: 065

REACTIONS (7)
  - BLOOD CORTISOL DECREASED [None]
  - BULIMIA NERVOSA [None]
  - CUSHING'S SYNDROME [None]
  - NERVOUSNESS [None]
  - SWELLING FACE [None]
  - TREMOR [None]
  - WEIGHT INCREASED [None]
